FAERS Safety Report 22148621 (Version 3)
Quarter: 2023Q4

REPORT INFORMATION
  Report Type: Spontaneous
  Country: US (occurrence: US)
  Receive Date: 20230328
  Receipt Date: 20231005
  Transmission Date: 20240109
  Serious: No
  Sender: FDA-Public Use
  Company Number: US-PFIZER INC-PV202300057345

PATIENT
  Age: 81 Year
  Sex: Male

DRUGS (1)
  1. NIVESTYM [Suspect]
     Active Substance: FILGRASTIM-AAFI
     Dosage: 300 UG, WEEKLY

REACTIONS (3)
  - Hypoacusis [Unknown]
  - Wrong strength [Unknown]
  - Off label use [Unknown]
